FAERS Safety Report 4286324-X (Version None)
Quarter: 2004Q1

REPORT INFORMATION
  Report Type: 
  Country: None (occurrence: None)
  Receive Date: 20040116
  Receipt Date: 20030915
  Transmission Date: 20041129
  Serious: Yes (Other)
  Sender: FDA-Public Use
  Company Number: 346788

PATIENT
  Age: 55 Year
  Sex: Female

DRUGS (1)
  1. VERSED [Suspect]
     Indication: SEDATION
     Dosage: 1.5 MG DAILY INTRAVENOUS
     Route: 042

REACTIONS (4)
  - BRONCHOSPASM [None]
  - MEDICATION ERROR [None]
  - RESPIRATORY ARREST [None]
  - RESPIRATORY DEPRESSION [None]
